FAERS Safety Report 7047691-7 (Version None)
Quarter: 2010Q4

REPORT INFORMATION
  Report Type: 
  Country: None (occurrence: None)
  Receive Date: 20101015
  Receipt Date: 20100728
  Transmission Date: 20110411
  Serious: Yes (Other)
  Sender: FDA-Public Use
  Company Number: PHHY2008GB31929

PATIENT
  Sex: Male

DRUGS (3)
  1. CLOZARIL [Suspect]
     Indication: SCHIZOPHRENIA
     Dosage: UNK
     Route: 048
     Dates: start: 20071022, end: 20081211
  2. METRONIDAZOLE [Concomitant]
     Dosage: UNK
  3. FLUCLOXACILLIN [Suspect]
     Indication: OSTEOMYELITIS CHRONIC
     Dosage: UNK
     Dates: end: 20081222

REACTIONS (4)
  - LIMB INJURY [None]
  - NEUTROPHIL COUNT DECREASED [None]
  - OSTEOMYELITIS CHRONIC [None]
  - WHITE BLOOD CELL COUNT DECREASED [None]
